FAERS Safety Report 17114346 (Version 1)
Quarter: 2019Q4

REPORT INFORMATION
  Report Type: Spontaneous
  Country: US (occurrence: US)
  Receive Date: 20191112
  Receipt Date: 20191112
  Transmission Date: 20200122
  Serious: No
  Sender: FDA-Public Use
  Company Number: None

PATIENT
  Age: 68 Year
  Sex: Male

DRUGS (1)
  1. CAPECITABINE TAB 500MG [Suspect]
     Active Substance: CAPECITABINE
     Route: 048
     Dates: start: 20190819, end: 20191112

REACTIONS (3)
  - Faeces soft [None]
  - Therapy cessation [None]
  - Abdominal pain upper [None]

NARRATIVE: CASE EVENT DATE: 20191112
